FAERS Safety Report 8129842-6 (Version None)
Quarter: 2012Q1

REPORT INFORMATION
  Report Type: 
  Country: None (occurrence: None)
  Receive Date: 20120103
  Receipt Date: 20111119
  Transmission Date: 20120608
  Serious: No
  Sender: FDA-Public Use
  Company Number: AE-2011-003787

PATIENT
  Age: 50 Year
  Sex: Male
  Weight: 120.2032 kg

DRUGS (5)
  1. RIBAVIRIN [Concomitant]
  2. PEGINTERFERON (PEGINTERFERON ALFA-2A) [Concomitant]
  3. HIGH BLOOD MEDICATION (ANTIHYPERTENSIVES) [Concomitant]
  4. HEART BURN PILL (ANTACIDS) [Concomitant]
  5. INCIVEK [Suspect]
     Dosage: 2250 MG (750 MG, 3 IN 1 D), ORAL
     Route: 048
     Dates: start: 20111106

REACTIONS (1)
  - RASH [None]
